FAERS Safety Report 13539279 (Version 1)
Quarter: 2017Q2

REPORT INFORMATION
  Report Type: Spontaneous
  Country: US (occurrence: US)
  Receive Date: 20170511
  Receipt Date: 20170511
  Transmission Date: 20170830
  Serious: No
  Sender: FDA-Public Use
  Company Number: None

PATIENT
  Age: 66 Year
  Sex: Male

DRUGS (1)
  1. HUMIRA [Suspect]
     Active Substance: ADALIMUMAB
     Indication: RHEUMATOID ARTHRITIS
     Dosage: 40 MG PEN INJECT 1 PEN EVERY 7 DAYS SUBQ
     Route: 058
     Dates: start: 20170215

REACTIONS (2)
  - Bronchitis [None]
  - Bacterial infection [None]

NARRATIVE: CASE EVENT DATE: 20170510
